FAERS Safety Report 25012045 (Version 2)
Quarter: 2025Q1

REPORT INFORMATION
  Report Type: Spontaneous
  Country: US (occurrence: US)
  Receive Date: 20250226
  Receipt Date: 20250320
  Transmission Date: 20250408
  Serious: Yes (Other)
  Sender: THEA PHARMA INC.
  Company Number: US-THEA-2025000377

PATIENT
  Sex: Female

DRUGS (1)
  1. AZASITE [Suspect]
     Active Substance: AZITHROMYCIN MONOHYDRATE
     Indication: Product used for unknown indication
     Dosage: BOTH EYES FOR 10 DAYS
     Route: 047
     Dates: start: 2025

REACTIONS (3)
  - Product complaint [Unknown]
  - Eye disorder [Unknown]
  - Illness [Unknown]

NARRATIVE: CASE EVENT DATE: 20250101
